FAERS Safety Report 5045456-9 (Version None)
Quarter: 2006Q3

REPORT INFORMATION
  Report Type: 
  Country: None (occurrence: None)
  Receive Date: 20060707
  Receipt Date: 20060630
  Transmission Date: 20061208
  Serious: Yes (Other)
  Sender: FDA-Public Use
  Company Number: PHBS2006BE10000

PATIENT
  Age: 61 Year
  Sex: Female

DRUGS (3)
  1. ZOMETA [Suspect]
     Indication: BREAST CANCER
     Dosage: UNK, UNK
     Route: 065
     Dates: start: 20030101, end: 20060101
  2. CHEMOTHERAPEUTICS,OTHER [Concomitant]
  3. CORTICOSTEROID NOS [Concomitant]
     Dosage: SHORT-TERM

REACTIONS (3)
  - ABSCESS [None]
  - BONE LESION [None]
  - OSTEONECROSIS [None]
